FAERS Safety Report 8565239-2 (Version None)
Quarter: 2012Q3

REPORT INFORMATION
  Report Type: 
  Country: None (occurrence: None)
  Receive Date: 20120803
  Receipt Date: 20120717
  Transmission Date: 20120928
  Serious: Yes (Hospitalization)
  Sender: FDA-Public Use
  Company Number: JP-GLAXOSMITHKLINE-B0816024A

PATIENT
  Sex: Male

DRUGS (7)
  1. SOLU-MEDROL [Suspect]
     Indication: PRODUCT USED FOR UNKNOWN INDICATION
     Route: 042
     Dates: start: 20120701
  2. LITHIUM CARBONATE [Concomitant]
     Indication: BIPOLAR DISORDER
     Dosage: 800MG PER DAY
     Route: 048
  3. LAMICTAL [Suspect]
     Indication: BIPOLAR DISORDER
     Dosage: 200MG PER DAY
     Route: 048
     Dates: end: 20120711
  4. NARCARICIN [Concomitant]
     Route: 048
  5. NITRAZEPAM [Concomitant]
     Dosage: 10MG PER DAY
     Route: 048
  6. SILECE [Concomitant]
     Indication: INSOMNIA
     Dosage: 1MG PER DAY
     Route: 065
  7. SENIRAN [Concomitant]
     Dosage: 4MG PER DAY
     Route: 048

REACTIONS (7)
  - RASH [None]
  - FACE OEDEMA [None]
  - PYREXIA [None]
  - DRUG RASH WITH EOSINOPHILIA AND SYSTEMIC SYMPTOMS [None]
  - DERMATITIS CONTACT [None]
  - EOSINOPHILIA [None]
  - PNEUMONIA [None]
